FAERS Safety Report 19533906 (Version 6)
Quarter: 2024Q2

REPORT INFORMATION
  Report Type: Report from Study
  Country: BR (occurrence: BR)
  Receive Date: 20210713
  Receipt Date: 20240423
  Transmission Date: 20240716
  Serious: Yes (Hospitalization, Disabling, Other)
  Sender: FDA-Public Use
  Company Number: BR-SA-2019SA355201

PATIENT
  Age: 27 Year
  Sex: Female
  Weight: 95 kg

DRUGS (3)
  1. ALEMTUZUMAB [Suspect]
     Active Substance: ALEMTUZUMAB
     Indication: Multiple sclerosis
     Dosage: 12 MG, QD
     Route: 042
     Dates: start: 20191016
  2. ALEMTUZUMAB [Suspect]
     Active Substance: ALEMTUZUMAB
     Dosage: 12 MG, QD
     Route: 042
     Dates: start: 20191021, end: 20201023
  3. AMOXICILLIN [Suspect]
     Active Substance: AMOXICILLIN
     Indication: Suspected COVID-19
     Dosage: UNK
     Route: 065
     Dates: start: 202102, end: 202102

REACTIONS (38)
  - Deep vein thrombosis [Recovering/Resolving]
  - Peripheral swelling [Recovering/Resolving]
  - Abdominal distension [Recovering/Resolving]
  - Anxiety [Recovering/Resolving]
  - Pain [Recovering/Resolving]
  - Vomiting [Recovering/Resolving]
  - Dyspnoea [Recovering/Resolving]
  - Exophthalmos [Recovering/Resolving]
  - Wheelchair user [Recovering/Resolving]
  - Depression [Recovering/Resolving]
  - Dizziness [Recovering/Resolving]
  - Urticaria [Recovered/Resolved]
  - Pruritus [Recovered/Resolved]
  - Menstruation irregular [Recovered/Resolved]
  - Condition aggravated [Recovered/Resolved]
  - Menstrual disorder [Recovered/Resolved]
  - Menstruation delayed [Recovered/Resolved]
  - Alopecia [Recovered/Resolved]
  - Weight increased [Recovering/Resolving]
  - Nervousness [Recovering/Resolving]
  - Decreased appetite [Recovering/Resolving]
  - Malaise [Recovering/Resolving]
  - Excessive eye blinking [Recovering/Resolving]
  - Magnetic resonance imaging abnormal [Recovering/Resolving]
  - Paraesthesia [Recovering/Resolving]
  - Pain in extremity [Recovering/Resolving]
  - Arthralgia [Recovering/Resolving]
  - Back pain [Recovering/Resolving]
  - Dizziness [Recovering/Resolving]
  - Pain [Unknown]
  - Influenza [Recovered/Resolved]
  - Dysuria [Recovering/Resolving]
  - Multiple allergies [Recovering/Resolving]
  - Weight decreased [Recovering/Resolving]
  - Depressive symptom [Unknown]
  - Suspected COVID-19 [Recovering/Resolving]
  - Insomnia [Recovering/Resolving]
  - Drug ineffective [Unknown]

NARRATIVE: CASE EVENT DATE: 20191001
